FAERS Safety Report 9472709 (Version 5)
Quarter: 2013Q4

REPORT INFORMATION
  Report Type: Report from Study
  Country: US (occurrence: US)
  Receive Date: 20130823
  Receipt Date: 20131004
  Transmission Date: 20140711
  Serious: Yes (Hospitalization)
  Sender: FDA-Public Use
  Company Number: US-PFIZER INC-2013239175

PATIENT
  Age: 58 Year
  Sex: Male
  Weight: 90.66 kg

DRUGS (18)
  1. AXITINIB [Suspect]
     Indication: RECTAL CANCER
     Dosage: 5 MG, CYCLIC, 6 CYCLES
     Route: 048
     Dates: start: 20130226, end: 20130814
  2. OXALIPLATIN [Suspect]
     Indication: COLORECTAL CANCER METASTATIC
     Dosage: 179 MG, CYCLIC, 6 CYCLES
     Route: 042
     Dates: start: 20120924, end: 20130221
  3. FLUOROURACIL [Suspect]
     Indication: RENAL CANCER METASTATIC
     Dosage: 844 MG, CYCLIC, 6 CYCLES
     Route: 042
     Dates: start: 20120924, end: 20130221
  4. FLUOROURACIL [Suspect]
     Dosage: 5064 MG, CYCLIC, 6 CYCLES
     Route: 042
     Dates: start: 20120924, end: 20130223
  5. BEVACIZUMAB [Suspect]
     Indication: COLORECTAL CANCER METASTATIC
     Dosage: 473 MG, CYCLIC, 6 CYCLES
     Route: 042
     Dates: start: 20120924, end: 20130221
  6. LEUCOVORIN [Suspect]
     Indication: COLORECTAL CANCER METASTATIC
     Dosage: 844 MG, CYCLIC, 6 CYCLES
     Route: 042
     Dates: start: 20120924, end: 20130221
  7. XANAX [Concomitant]
     Indication: ANXIETY
     Dosage: 0.25
  8. STOOL SOFTENER [Concomitant]
     Indication: CONSTIPATION
     Dosage: 1 TAB, UNK
  9. ZOCOR [Concomitant]
     Indication: HYPERLIPIDAEMIA
     Dosage: 60 MG, UNK
  10. LISINOPRIL [Concomitant]
     Indication: HYPERTENSION
     Dosage: 40 MG, UNK
     Dates: start: 20121214
  11. PROZAC [Concomitant]
     Indication: DEPRESSION
     Dosage: 20 MG, UNK
     Dates: start: 20130520
  12. AMLODIPINE [Concomitant]
     Indication: HYPERTENSION
     Dosage: 10 MG, UNK
  13. METOPROLOL [Concomitant]
     Indication: HYPERTENSION
     Dosage: 100 MG, UNK
     Dates: start: 20130418
  14. BACTRIM [Concomitant]
     Indication: ANTIBIOTIC THERAPY
     Dosage: 800 MG, UNK
     Dates: start: 20130418, end: 20130428
  15. BACTRIM [Concomitant]
     Dosage: 800 MG, UNK
     Dates: start: 20130716
  16. CIPRO [Concomitant]
     Indication: ANTIBIOTIC THERAPY
     Dosage: 500 MG, UNK
     Dates: start: 20130601, end: 20130611
  17. AZITHROMYCIN [Concomitant]
     Indication: ANTIBIOTIC THERAPY
     Dosage: 500 MG, UNK
     Dates: start: 20130603, end: 20130610
  18. CLINDAMYCIN [Concomitant]
     Indication: ANTIBIOTIC THERAPY
     Dosage: 150 MG, UNK
     Dates: start: 20120803, end: 20130913

REACTIONS (1)
  - Clostridium test positive [Recovered/Resolved]
